FAERS Safety Report 19589387 (Version 5)
Quarter: 2021Q3

REPORT INFORMATION
  Report Type: Spontaneous
  Country: BE (occurrence: BE)
  Receive Date: 20210721
  Receipt Date: 20210812
  Transmission Date: 20211014
  Serious: Yes (Other)
  Sender: FDA-Public Use
  Company Number: BE-MYLANLABS-2021M1043687

PATIENT
  Age: 13 Year
  Sex: Male

DRUGS (2)
  1. ISOTRETINOIN. [Suspect]
     Active Substance: ISOTRETINOIN
     Dosage: 10 MILLIGRAM (10MG/DAY (0.1MG/KG/DAY)   )
     Route: 065
  2. ISOTRETINOIN. [Suspect]
     Active Substance: ISOTRETINOIN
     Indication: ACNE
     Dosage: 0.1 MILLIGRAM/KILOGRAM, QD
     Route: 065

REACTIONS (9)
  - Red blood cell sedimentation rate increased [Unknown]
  - Acne [Unknown]
  - Skin lesion [Not Recovered/Not Resolved]
  - C-reactive protein increased [Unknown]
  - Acne fulminans [Recovered/Resolved with Sequelae]
  - Secretion discharge [Unknown]
  - Scab [Unknown]
  - Ulcer [Unknown]
  - Skin mass [Unknown]
